FAERS Safety Report 8846436 (Version 2)
Quarter: 2012Q4

REPORT INFORMATION
  Report Type: 
  Country: US (occurrence: US)
  Receive Date: 20121017
  Receipt Date: 20121108
  Transmission Date: 20130627
  Serious: No
  Sender: FDA-Public Use
  Company Number: US-B.I. PHARMACEUTICALS,INC./RIDGEFIELD-2012-BP-24387BP

PATIENT
  Sex: Male

DRUGS (13)
  1. PRADAXA [Suspect]
     Indication: ATRIAL FIBRILLATION
     Dosage: 300 mg
     Route: 048
     Dates: start: 20120827, end: 20120910
  2. PRADAXA [Suspect]
     Indication: CARDIAC FAILURE CONGESTIVE
  3. FUROSEMIDE [Concomitant]
     Route: 048
  4. MULTIVITAMIN [Concomitant]
     Indication: SUPPLEMENTATION THERAPY
     Route: 048
  5. VASOTEC [Concomitant]
     Route: 048
  6. POTASSIUM [Concomitant]
     Indication: BLOOD POTASSIUM DECREASED
     Dosage: 40 mEq
     Route: 048
     Dates: start: 2008
  7. ALDACTONE [Concomitant]
     Route: 048
     Dates: start: 2008
  8. COREG [Concomitant]
     Route: 048
     Dates: start: 201202
  9. LASIX [Concomitant]
     Indication: FLUID RETENTION
     Dosage: 80 mg
     Route: 048
     Dates: start: 2008
  10. LISINOPRIL [Concomitant]
     Route: 048
  11. VITAMIN C [Concomitant]
     Indication: SUPPLEMENTATION THERAPY
     Dosage: 500 mg
     Route: 048
  12. VITAMIN D [Concomitant]
     Indication: SUPPLEMENTATION THERAPY
     Dosage: 200 U
     Route: 048
  13. VITAMIN E [Concomitant]
     Route: 048

REACTIONS (4)
  - Impaired driving ability [Recovered/Resolved]
  - Ill-defined disorder [Not Recovered/Not Resolved]
  - Abnormal dreams [Recovered/Resolved]
  - Insomnia [Recovered/Resolved]
